FAERS Safety Report 21994362 (Version 1)
Quarter: 2023Q1

REPORT INFORMATION
  Report Type: Spontaneous
  Country: US (occurrence: None)
  Receive Date: 20230210
  Receipt Date: 20230210
  Transmission Date: 20230417
  Serious: Yes (Death)
  Sender: FDA-Public Use
  Company Number: None

PATIENT
  Age: 8 Year
  Sex: Female

DRUGS (21)
  1. RAVICTI [Suspect]
     Active Substance: GLYCEROL PHENYLBUTYRATE
     Indication: Argininosuccinate lyase deficiency
     Dosage: 1.10000002ML QD ORAL? ?
     Route: 048
     Dates: start: 20180118, end: 20221204
  2. KEPPRA [Suspect]
     Active Substance: LEVETIRACETAM
  3. ARGININE [Concomitant]
     Active Substance: ARGININE
  4. ONDANSETRON [Concomitant]
     Active Substance: ONDANSETRON
  5. POLYCAL [Concomitant]
  6. LEVETIRACETAM [Concomitant]
     Active Substance: LEVETIRACETAM
  7. OMEPRAZOLE [Concomitant]
     Active Substance: OMEPRAZOLE
  8. alfamino junior [Concomitant]
  9. puramino toddler [Concomitant]
  10. mupirocin top oint [Concomitant]
  11. terbinafine top cream [Concomitant]
  12. clotrimazole to cream [Concomitant]
  13. SIMETHICONE [Concomitant]
  14. SODIUM BENZOATE [Concomitant]
     Active Substance: SODIUM BENZOATE
  15. rfaximin [Concomitant]
  16. SACCHAROMYCES CEREVISIAE [Concomitant]
     Active Substance: SACCHAROMYCES CEREVISIAE
  17. triamcinolone top cream [Concomitant]
  18. BENZOIC ACID [Concomitant]
     Active Substance: BENZOIC ACID
  19. RIFAXIMIN [Concomitant]
     Active Substance: RIFAXIMIN
  20. SACCHAROMYCES CEREVISIAE [Concomitant]
     Active Substance: SACCHAROMYCES CEREVISIAE
  21. TRIAMCINOLONE [Concomitant]

REACTIONS (8)
  - Vomiting [None]
  - Lethargy [None]
  - Diarrhoea [None]
  - Status epilepticus [None]
  - Metabolic disorder [None]
  - Acute respiratory failure [None]
  - Cerebral ischaemia [None]
  - Brain hypoxia [None]

NARRATIVE: CASE EVENT DATE: 20221125
